FAERS Safety Report 5129362-7 (Version None)
Quarter: 2006Q4

REPORT INFORMATION
  Report Type: 
  Country: None (occurrence: None)
  Receive Date: 20061012
  Receipt Date: 20060929
  Transmission Date: 20070319
  Serious: Yes (Other)
  Sender: FDA-Public Use
  Company Number: SPV1-2006-00970

PATIENT
  Age: 8 Year
  Sex: Male

DRUGS (2)
  1. ADDERALL (DEXTROAMPHETAMINE SACCHARATE, AMPHETAMINE SULFATE, AMPHETAMI [Suspect]
     Indication: ATTENTION DEFICIT/HYPERACTIVITY DISORDER
     Dosage: 10 MG, 1X/DAY; QD
     Dates: start: 19980101, end: 20000101
  2. ADDERALL 10 [Suspect]
     Indication: ATTENTION DEFICIT/HYPERACTIVITY DISORDER
     Dosage: 20 MG, 1X/DAY; QD
     Dates: start: 20000101, end: 20040101

REACTIONS (2)
  - BORDERLINE GLAUCOMA [None]
  - MIGRAINE [None]
